FAERS Safety Report 4622469-X (Version None)
Quarter: 2005Q1

REPORT INFORMATION
  Report Type: 
  Country: None (occurrence: None)
  Receive Date: 20050330
  Receipt Date: 20050209
  Transmission Date: 20050727
  Serious: Yes (Death)
  Sender: FDA-Public Use
  Company Number: 200510478FR

PATIENT
  Age: 40 Year
  Sex: Female

DRUGS (4)
  1. KETEK [Suspect]
     Indication: BRONCHITIS
     Route: 048
     Dates: start: 20050121, end: 20050126
  2. CELESTENE [Suspect]
     Indication: BRONCHITIS
     Route: 048
     Dates: start: 20050121, end: 20050124
  3. EFFERALGAN [Suspect]
     Indication: BRONCHITIS
     Route: 048
     Dates: start: 20050121, end: 20050127
  4. MUXOL [Suspect]
     Indication: BRONCHITIS
     Route: 048
     Dates: start: 20050121, end: 20050127

REACTIONS (9)
  - AORTIC DISSECTION [None]
  - CARDIAC ARREST [None]
  - CHEST PAIN [None]
  - DYSPEPSIA [None]
  - ELECTROCARDIOGRAM QT SHORTENED [None]
  - ELECTROMECHANICAL DISSOCIATION [None]
  - MYOCARDIAL INFARCTION [None]
  - VENTRICULAR FIBRILLATION [None]
  - VENTRICULAR TACHYCARDIA [None]
